FAERS Safety Report 4562196-0 (Version None)
Quarter: 2005Q1

REPORT INFORMATION
  Report Type: 
  Country: None (occurrence: None)
  Receive Date: 20050121
  Receipt Date: 20050107
  Transmission Date: 20050727
  Serious: Yes (Other)
  Sender: FDA-Public Use
  Company Number: USA041184306

PATIENT
  Age: 56 Year
  Sex: Female

DRUGS (4)
  1. PROZAC [Suspect]
     Indication: DEPRESSION
     Dates: start: 19930101
  2. CYMBALTA [Suspect]
     Dosage: 20 MG
  3. CODEINE [Concomitant]
  4. DEMEROL (PETHIDINE HDROCHLORIDE) [Concomitant]

REACTIONS (14)
  - CONDITION AGGRAVATED [None]
  - DEPRESSION [None]
  - DIARRHOEA [None]
  - HYPERHIDROSIS [None]
  - HYPERSENSITIVITY [None]
  - INTERVERTEBRAL DISC PROTRUSION [None]
  - LOSS OF CONSCIOUSNESS [None]
  - MORTON'S NEUROMA [None]
  - NAUSEA [None]
  - NEUROPATHY PERIPHERAL [None]
  - PAIN [None]
  - ROAD TRAFFIC ACCIDENT [None]
  - SEPSIS [None]
  - SWEAT GLAND DISORDER [None]
